FAERS Safety Report 11608454 (Version 1)
Quarter: 2015Q4

REPORT INFORMATION
  Report Type: Spontaneous
  Country: US (occurrence: US)
  Receive Date: 20151007
  Receipt Date: 20151007
  Transmission Date: 20160304
  Serious: Yes (Other)
  Sender: FDA-Public Use
  Company Number: US-MYLANLABS-2015M1033724

PATIENT

DRUGS (7)
  1. DACLIZUMAB [Suspect]
     Active Substance: DACLIZUMAB
     Indication: BIRDSHOT CHORIORETINOPATHY
     Dosage: UNK
     Route: 065
  2. METHOTREXATE [Suspect]
     Active Substance: METHOTREXATE
     Indication: BIRDSHOT CHORIORETINOPATHY
     Dosage: UNK
     Route: 065
  3. CICLOSPORIN [Suspect]
     Active Substance: CYCLOSPORINE
     Indication: BIRDSHOT CHORIORETINOPATHY
     Dosage: UNK
     Route: 065
  4. PREDNISONE. [Suspect]
     Active Substance: PREDNISONE
     Indication: BIRDSHOT CHORIORETINOPATHY
     Dosage: UNK
     Route: 065
  5. MYCOPHENOLATE MOFETIL. [Suspect]
     Active Substance: MYCOPHENOLATE MOFETIL
     Indication: BIRDSHOT CHORIORETINOPATHY
     Route: 065
  6. CELECOXIB. [Concomitant]
     Active Substance: CELECOXIB
     Indication: BIRDSHOT CHORIORETINOPATHY
     Route: 065
  7. RETISERT [Suspect]
     Active Substance: FLUOCINOLONE ACETONIDE
     Indication: BIRDSHOT CHORIORETINOPATHY
     Dosage: 0.59 MG, UNK
     Route: 050

REACTIONS (2)
  - Hypertension [Unknown]
  - Cataract [Unknown]
